FAERS Safety Report 14015632 (Version 2)
Quarter: 2017Q4

REPORT INFORMATION
  Report Type: Spontaneous
  Country: CN (occurrence: CN)
  Receive Date: 20170927
  Receipt Date: 20171005
  Transmission Date: 20180321
  Serious: Yes (Hospitalization, Other)
  Sender: FDA-Public Use
  Company Number: CN-ASTRAZENECA-2017SE96780

PATIENT
  Age: 80 Year
  Sex: Female

DRUGS (1)
  1. TAGRISSO [Suspect]
     Active Substance: OSIMERTINIB
     Route: 048
     Dates: start: 20170804

REACTIONS (9)
  - Metastases to lymph nodes [Unknown]
  - Erythema multiforme [Recovering/Resolving]
  - Chronic gastritis [Unknown]
  - Cataract [Unknown]
  - Metastases to central nervous system [Unknown]
  - Vertigo [Unknown]
  - Macular degeneration [Unknown]
  - Metastases to the mediastinum [Unknown]
  - Carotid arteriosclerosis [Unknown]

NARRATIVE: CASE EVENT DATE: 201708
